FAERS Safety Report 23406644 (Version 1)
Quarter: 2024Q1

REPORT INFORMATION
  Report Type: Spontaneous
  Country: CN (occurrence: None)
  Receive Date: 20240116
  Receipt Date: 20240116
  Transmission Date: 20240410
  Serious: Yes (Hospitalization)
  Sender: FDA-Public Use
  Company Number: 2024A008957

PATIENT
  Age: 86 Year
  Sex: Male
  Weight: 70 kg

DRUGS (16)
  1. QUETIAPINE [Interacting]
     Active Substance: QUETIAPINE
     Dosage: 62.5 MG QN
     Route: 048
  2. ASPIRIN [Concomitant]
     Active Substance: ASPIRIN
     Dosage: (100 MG QD)
  3. ATORVASTATIN [Concomitant]
     Active Substance: ATORVASTATIN
     Dosage: 20 MG QN
  4. TICAGRELOR [Concomitant]
     Active Substance: TICAGRELOR
     Dosage: 60 MG BID
  5. DIGOXIN [Concomitant]
     Active Substance: DIGOXIN
     Dosage: 0.125 MG QD
  6. OLANZAPINE [Concomitant]
     Active Substance: OLANZAPINE
     Dosage: 5 MG QN
  7. ESTAZOLAM [Concomitant]
     Active Substance: ESTAZOLAM
     Dosage: 1 MG QN
  8. DIVALPROEX SODIUM [Concomitant]
     Active Substance: DIVALPROEX SODIUM
     Dosage: 250MG BID
  9. ARIPIPRAZOLE [Concomitant]
     Active Substance: ARIPIPRAZOLE
     Dosage: 5 MG QN
  10. IBUPROFEN [Concomitant]
     Active Substance: IBUPROFEN
     Dosage: 300 MG)
  11. RO-0622 [Concomitant]
     Active Substance: RO-0622
     Dosage: 2 MG DAILY
  12. BALOXAVIR [Concomitant]
     Active Substance: BALOXAVIR
     Dosage: 40 MG ONCE
  13. METHYLPREDNISOLONE [Concomitant]
     Active Substance: METHYLPREDNISOLONE
     Dosage: 40 MG ONCE
  14. BUDESONIDE [Concomitant]
     Active Substance: BUDESONIDE
     Route: 055
  15. AMBROXOL [Concomitant]
     Active Substance: AMBROXOL
  16. NIRMATRELVIR\RITONAVIR [Concomitant]
     Active Substance: NIRMATRELVIR\RITONAVIR
     Dosage: 150MG/100MG ONCE DAILY FOR 5 DAYS

REACTIONS (1)
  - Potentiating drug interaction [Unknown]
